FAERS Safety Report 7618941-0 (Version None)
Quarter: 2011Q3

REPORT INFORMATION
  Report Type: 
  Country: None (occurrence: None)
  Receive Date: 20110718
  Receipt Date: 20110707
  Transmission Date: 20111222
  Serious: No
  Sender: FDA-Public Use
  Company Number: DK-ASTRAZENECA-2011SE35463

PATIENT
  Age: 47 Year
  Sex: Female

DRUGS (6)
  1. DOLOPROCT [Suspect]
     Route: 065
  2. TOLVON [Suspect]
     Route: 065
  3. NEXIUM [Suspect]
     Route: 048
  4. MORPHINE SULFATE [Suspect]
     Route: 065
  5. IBUPROFEN [Suspect]
     Route: 065
  6. ATENOLOL [Suspect]
     Route: 065

REACTIONS (6)
  - EYE DISORDER [None]
  - INFECTION [None]
  - CHEST DISCOMFORT [None]
  - LIMB INJURY [None]
  - BACK DISORDER [None]
  - ABDOMINAL PAIN UPPER [None]
